FAERS Safety Report 9337349 (Version 1)
Quarter: 2013Q2

REPORT INFORMATION
  Report Type: Spontaneous
  Country: BR (occurrence: BR)
  Receive Date: 20130607
  Receipt Date: 20130607
  Transmission Date: 20140414
  Serious: Yes (Other)
  Sender: FDA-Public Use
  Company Number: PHHY2013BR057846

PATIENT
  Sex: Female
  Weight: 49 kg

DRUGS (3)
  1. TEGRETOL [Suspect]
     Indication: ARRHYTHMIA
     Dosage: 3 DF, TID
     Route: 048
     Dates: start: 1977
  2. TEGRETOL [Suspect]
     Dosage: 2 DF, BID
     Route: 048
     Dates: end: 2009
  3. RIVOTRIL [Concomitant]
     Indication: ARRHYTHMIA
     Dosage: 6 DRP, DAILY
     Route: 048

REACTIONS (2)
  - Petit mal epilepsy [Recovering/Resolving]
  - Somnolence [Recovering/Resolving]
